FAERS Safety Report 17076258 (Version 1)
Quarter: 2019Q4

REPORT INFORMATION
  Report Type: Spontaneous
  Country: NL (occurrence: NL)
  Receive Date: 20191126
  Receipt Date: 20191126
  Transmission Date: 20200122
  Serious: Yes (Other)
  Sender: FDA-Public Use
  Company Number: NL-MYLANLABS-2019M1040505

PATIENT
  Sex: Male

DRUGS (7)
  1. SIMVASTATIN. [Suspect]
     Active Substance: SIMVASTATIN
     Indication: CARDIOVASCULAR DISORDER
     Dosage: 1X PER DAG 1 TABLET
     Route: 048
     Dates: start: 20180123, end: 201802
  2. PERINDOPRIL [Concomitant]
     Active Substance: PERINDOPRIL
     Dosage: 1D1T
     Dates: start: 20181113
  3. NAPROXEN. [Concomitant]
     Active Substance: NAPROXEN
     Dosage: 2D1T
     Dates: start: 20181109
  4. MIDAZOLAM [Concomitant]
     Active Substance: MIDAZOLAM HYDROCHLORIDE
     Dosage: UNK
     Dates: start: 20181217
  5. TRAMADOL. [Concomitant]
     Active Substance: TRAMADOL
     Dosage: 1-3D1C
     Dates: start: 20181109
  6. MIDAZOLAM [Concomitant]
     Active Substance: MIDAZOLAM HYDROCHLORIDE
     Dosage: 3 MILLIGRAM, QD, 1 DD 0,5 T
     Dates: start: 20091231
  7. OMEPRAZOL                          /00661201/ [Concomitant]
     Active Substance: OMEPRAZOLE
     Dosage: 1D1C
     Dates: start: 20181109

REACTIONS (2)
  - Erectile dysfunction [Recovered/Resolved]
  - Gynaecomastia [Recovered/Resolved]
